FAERS Safety Report 20414982 (Version 2)
Quarter: 2022Q1

REPORT INFORMATION
  Report Type: Spontaneous
  Country: US (occurrence: US)
  Receive Date: 20220202
  Receipt Date: 20220225
  Transmission Date: 20220423
  Serious: Yes (Hospitalization, Other)
  Sender: FDA-Public Use
  Company Number: US-BIOVITRUM-2022US01346

PATIENT
  Sex: Male

DRUGS (7)
  1. SYNAGIS [Suspect]
     Active Substance: PALIVIZUMAB
     Indication: Laryngeal stenosis
     Route: 030
     Dates: start: 202111
  2. SYNAGIS [Suspect]
     Active Substance: PALIVIZUMAB
     Indication: Laryngocele
  3. SYNAGIS [Suspect]
     Active Substance: PALIVIZUMAB
     Indication: Congenital oral malformation
  4. SYNAGIS [Suspect]
     Active Substance: PALIVIZUMAB
     Indication: Laryngomalacia
  5. SYNAGIS [Suspect]
     Active Substance: PALIVIZUMAB
     Indication: Respiratory tract malformation
  6. SYNAGIS [Suspect]
     Active Substance: PALIVIZUMAB
     Indication: Congenital cystic lung
  7. SYNAGIS [Suspect]
     Active Substance: PALIVIZUMAB
     Indication: Multiple congenital abnormalities

REACTIONS (4)
  - Tachypnoea [Recovered/Resolved]
  - Rhinovirus infection [Recovered/Resolved]
  - Bronchiolitis [Recovered/Resolved]
  - Pyrexia [Recovered/Resolved]
